FAERS Safety Report 6133936-4 (Version None)
Quarter: 2009Q1

REPORT INFORMATION
  Report Type: 
  Country: None (occurrence: None)
  Receive Date: 20090326
  Receipt Date: 20090324
  Transmission Date: 20090719
  Serious: Yes (Hospitalization)
  Sender: FDA-Public Use
  Company Number: US-ABBOTT-09P-163-0564149-00

PATIENT
  Sex: Male
  Weight: 99.88 kg

DRUGS (4)
  1. DEPAKOTE [Suspect]
     Indication: BIPOLAR DISORDER
     Dosage: STARTED ON AN UNKNOWN DOSE
     Dates: start: 20040101
  2. DEPAKOTE [Suspect]
     Dates: start: 20081101
  3. DEPAKOTE [Suspect]
  4. ADDERALL 10 [Concomitant]
     Indication: DRUG USE FOR UNKNOWN INDICATION
     Dates: start: 20030101

REACTIONS (2)
  - ANGER [None]
  - ANTICONVULSANT DRUG LEVEL BELOW THERAPEUTIC [None]
